FAERS Safety Report 5907482-4 (Version None)
Quarter: 2008Q4

REPORT INFORMATION
  Report Type: 
  Country: None (occurrence: None)
  Receive Date: 20081003
  Receipt Date: 20080926
  Transmission Date: 20090506
  Serious: Yes (Hospitalization, Congenital Anomaly)
  Sender: FDA-Public Use
  Company Number: B0539983A

PATIENT
  Sex: Female
  Weight: 3 kg

DRUGS (1)
  1. SEROXAT [Suspect]
     Indication: DRUG USE FOR UNKNOWN INDICATION
     Dosage: 30MG PER DAY

REACTIONS (1)
  - PULMONARY ARTERIAL HYPERTENSION [None]
